FAERS Safety Report 5152384-7 (Version None)
Quarter: 2006Q4

REPORT INFORMATION
  Report Type: 
  Country: None (occurrence: None)
  Receive Date: 20061116
  Receipt Date: 20061109
  Transmission Date: 20070319
  Serious: Yes (Death, Hospitalization, Other)
  Sender: FDA-Public Use
  Company Number: US-JNJFOC-20060505717

PATIENT
  Sex: Female
  Weight: 116.58 kg

DRUGS (22)
  1. DURAGESIC-100 [Suspect]
     Route: 062
  2. DURAGESIC-100 [Suspect]
     Route: 062
  3. DURAGESIC-100 [Suspect]
     Indication: PAIN
     Route: 062
  4. FLUOXETINE [Suspect]
     Indication: DRUG USE FOR UNKNOWN INDICATION
  5. OLANZAPINE [Suspect]
     Indication: DRUG USE FOR UNKNOWN INDICATION
  6. ACTIQ [Suspect]
     Route: 048
  7. ACTIQ [Suspect]
     Route: 048
  8. ACTIQ [Suspect]
     Route: 048
  9. ACTIQ [Suspect]
     Indication: DRUG USE FOR UNKNOWN INDICATION
     Route: 048
  10. BENTYL [Concomitant]
  11. PROTONIX [Concomitant]
  12. BUSPAR [Concomitant]
  13. CORGARD [Concomitant]
  14. XANAX [Concomitant]
  15. LORTAB [Concomitant]
  16. RELAFEN [Concomitant]
  17. ZANAFLEX [Concomitant]
  18. PHENERGAN [Concomitant]
  19. PROZAC [Concomitant]
  20. BUSPAR [Concomitant]
  21. REGLAN [Concomitant]
  22. NEURONTIN [Concomitant]

REACTIONS (26)
  - BULIMIA NERVOSA [None]
  - CONFUSIONAL STATE [None]
  - DELIRIUM [None]
  - DEPRESSION [None]
  - DIABETES MELLITUS NON-INSULIN-DEPENDENT [None]
  - DIARRHOEA [None]
  - DILATATION VENTRICULAR [None]
  - DRUG SCREEN POSITIVE [None]
  - DRUG TOXICITY [None]
  - ELECTROCARDIOGRAM QT PROLONGED [None]
  - GASTROOESOPHAGEAL REFLUX DISEASE [None]
  - HEADACHE [None]
  - HYPOKALAEMIA [None]
  - INTERVERTEBRAL DISC DEGENERATION [None]
  - MENORRHAGIA [None]
  - MENTAL STATUS CHANGES [None]
  - MIGRAINE [None]
  - NEURALGIA [None]
  - NUCLEAR MAGNETIC RESONANCE IMAGING BRAIN ABNORMAL [None]
  - OVERDOSE [None]
  - PAIN [None]
  - PELVIC PAIN [None]
  - PULMONARY OEDEMA [None]
  - UTERINE HAEMORRHAGE [None]
  - VICTIM OF SEXUAL ABUSE [None]
  - VISCERAL CONGESTION [None]
